FAERS Safety Report 4852227-2 (Version None)
Quarter: 2005Q4

REPORT INFORMATION
  Report Type: 
  Country: None (occurrence: None)
  Receive Date: 20051123
  Receipt Date: 20050823
  Transmission Date: 20060501
  Serious: Yes (Hospitalization)
  Sender: FDA-Public Use
  Company Number: 2005119492

PATIENT
  Age: 51 Year
  Sex: Male
  Weight: 97.5234 kg

DRUGS (5)
  1. CADUET [Suspect]
     Indication: BLOOD CHOLESTEROL INCREASED
     Dosage: 5MG/20MG (1 IN 1 D)
     Dates: start: 20050101
  2. CADUET [Suspect]
     Indication: HYPERTENSION
     Dosage: 5MG/20MG (1 IN 1 D)
     Dates: start: 20050101
  3. IBUPROFEN [Suspect]
     Indication: ILL-DEFINED DISORDER
     Dosage: (800 MG)
     Dates: end: 20040101
  4. VIOXX [Suspect]
     Indication: ILL-DEFINED DISORDER
     Dates: end: 20040101
  5. CLARINEX [Concomitant]

REACTIONS (7)
  - ABDOMINAL PAIN UPPER [None]
  - BLOOD CHOLESTEROL INCREASED [None]
  - GASTROINTESTINAL PAIN [None]
  - HEADACHE [None]
  - HYPERTENSION [None]
  - MUSCLE SPASMS [None]
  - PAIN IN EXTREMITY [None]
